FAERS Safety Report 19562120 (Version 1)
Quarter: 2021Q3

REPORT INFORMATION
  Report Type: Spontaneous
  Country: US (occurrence: US)
  Receive Date: 20210716
  Receipt Date: 20210716
  Transmission Date: 20211014
  Serious: No
  Sender: FDA-Public Use
  Company Number: US-ELI_LILLY_AND_COMPANY-US202107006948

PATIENT
  Age: 25 Year

DRUGS (1)
  1. TALTZ [Suspect]
     Active Substance: IXEKIZUMAB
     Indication: PSORIASIS
     Dosage: 160 MG, SINGLE
     Route: 065
     Dates: start: 20210702

REACTIONS (3)
  - Injection site pruritus [Unknown]
  - Injection site rash [Unknown]
  - Injection site pain [Unknown]

NARRATIVE: CASE EVENT DATE: 20210712
